FAERS Safety Report 24293430 (Version 1)
Quarter: 2024Q3

REPORT INFORMATION
  Report Type: Spontaneous
  Country: US (occurrence: US)
  Receive Date: 20240906
  Receipt Date: 20240906
  Transmission Date: 20241017
  Serious: No
  Sender: DOMPE FARMACEUTICI
  Company Number: US-FARMAPROD-202308-202401-0123

PATIENT
  Sex: Male

DRUGS (5)
  1. OXERVATE [Suspect]
     Active Substance: CENEGERMIN-BKBJ
     Indication: Neurotrophic keratopathy
     Route: 047
     Dates: start: 20240103
  2. OXERVATE [Suspect]
     Active Substance: CENEGERMIN-BKBJ
     Indication: Ulcerative keratitis
  3. OFLOXACIN [Concomitant]
     Active Substance: OFLOXACIN
  4. Autologous serum tears [Concomitant]
  5. PREDNISOLONE/NEPAFENAC [Concomitant]

REACTIONS (2)
  - Malaise [Unknown]
  - Condition aggravated [Unknown]
